FAERS Safety Report 7914470-5 (Version None)
Quarter: 2011Q4

REPORT INFORMATION
  Report Type: 
  Country: None (occurrence: None)
  Receive Date: 20111110
  Receipt Date: 20111027
  Transmission Date: 20120403
  Serious: Yes (Hospitalization, Other)
  Sender: FDA-Public Use
  Company Number: 2011MA012627

PATIENT
  Sex: Male

DRUGS (25)
  1. NORTRIPTYLINE HCL [Concomitant]
  2. ZOLPIDEM [Concomitant]
  3. DIGOXIN [Suspect]
     Indication: HEART RATE IRREGULAR
     Dosage: 0.375 MG;PO
     Route: 048
     Dates: start: 19980101, end: 20080325
  4. CODEINE-GUAIFENESIN [Concomitant]
  5. LASIX [Concomitant]
  6. VITAMIN E [Concomitant]
  7. ASPIRIN [Concomitant]
  8. CYMBALTA [Concomitant]
  9. ABILIFY [Concomitant]
  10. TRICOR [Concomitant]
  11. GEMFIBROZIL [Concomitant]
  12. TRICOR [Concomitant]
  13. KERLONE [Concomitant]
  14. COUMADIN [Concomitant]
  15. ZOCOR [Concomitant]
  16. MONOPRIL [Concomitant]
  17. PRILOSEC [Concomitant]
  18. MIRTAZAPINE [Concomitant]
  19. ALPRAZOLAM [Concomitant]
  20. DOFELTILIDE [Concomitant]
  21. IMIPRAMINE HCL [Concomitant]
  22. LOTRISONE [Concomitant]
  23. NIASPAN [Concomitant]
  24. LANOXIN [Concomitant]
  25. AMIODARONE HCL [Concomitant]

REACTIONS (38)
  - AORTIC ARTERIOSCLEROSIS [None]
  - OSTEOARTHRITIS [None]
  - HYPERLIPIDAEMIA [None]
  - DRUG INTERACTION [None]
  - RENAL CYST [None]
  - SUICIDE ATTEMPT [None]
  - ADENOMYOSIS [None]
  - ABDOMINAL HERNIA [None]
  - MESENTERIC VASCULAR INSUFFICIENCY [None]
  - UPPER-AIRWAY COUGH SYNDROME [None]
  - EYE PRURITUS [None]
  - PULMONARY HYPERTENSION [None]
  - DECREASED APPETITE [None]
  - ABDOMINAL PAIN UPPER [None]
  - EMOTIONAL DISORDER [None]
  - MITRAL VALVE INCOMPETENCE [None]
  - GLUCOSE TOLERANCE IMPAIRED [None]
  - HAEMANGIOMA OF LIVER [None]
  - MALFORMATION VENOUS [None]
  - DIARRHOEA [None]
  - VENTRICULAR TACHYCARDIA [None]
  - HYPOPHAGIA [None]
  - SUBDURAL HAEMATOMA [None]
  - WEIGHT DECREASED [None]
  - LIVER DISORDER [None]
  - CARDIOMEGALY [None]
  - CARDIAC MURMUR [None]
  - ISCHAEMIC CARDIOMYOPATHY [None]
  - SINUS CONGESTION [None]
  - ATRIAL FIBRILLATION [None]
  - CORONARY ARTERY DISEASE [None]
  - INSOMNIA [None]
  - DEPRESSION [None]
  - ANXIETY [None]
  - DIZZINESS POSTURAL [None]
  - CEREBRAL HAEMORRHAGE [None]
  - CARDIAC FAILURE [None]
  - TRICUSPID VALVE INCOMPETENCE [None]
